FAERS Safety Report 17172616 (Version 1)
Quarter: 2019Q4

REPORT INFORMATION
  Report Type: Spontaneous
  Country: US (occurrence: US)
  Receive Date: 20191219
  Receipt Date: 20191219
  Transmission Date: 20200122
  Serious: No
  Sender: FDA-Public Use
  Company Number: US-SA-2019SA348069

PATIENT
  Sex: Female

DRUGS (2)
  1. ADLYXIN [Suspect]
     Active Substance: LIXISENATIDE
     Dosage: UNK
     Route: 065
  2. HUMULIN NOS [Concomitant]
     Active Substance: INSULIN HUMAN
     Dosage: UNK UNK, UNK
     Route: 065

REACTIONS (2)
  - Abdominal pain upper [Unknown]
  - Back pain [Unknown]
